FAERS Safety Report 17565972 (Version 1)
Quarter: 2020Q1

REPORT INFORMATION
  Report Type: Spontaneous
  Country: US (occurrence: US)
  Receive Date: 20200320
  Receipt Date: 20200320
  Transmission Date: 20200409
  Serious: No
  Sender: FDA-Public Use
  Company Number: US-ASTRAZENECA-2020SE36152

PATIENT
  Sex: Female
  Weight: 70.3 kg

DRUGS (4)
  1. NEXIUM [Suspect]
     Active Substance: ESOMEPRAZOLE MAGNESIUM
     Route: 048
  2. ESOMEPRAZOLE MAGNESIUM 24 HOUR [Suspect]
     Active Substance: ESOMEPRAZOLE MAGNESIUM
     Dosage: UNKNOWN
     Route: 048
  3. PRILOSEC [Suspect]
     Active Substance: OMEPRAZOLE MAGNESIUM
     Dosage: UNKNOWN
     Route: 048
  4. ESOMEPRAZOLE MAGNESIUM. [Suspect]
     Active Substance: ESOMEPRAZOLE MAGNESIUM
     Indication: GASTROOESOPHAGEAL REFLUX DISEASE
     Route: 048

REACTIONS (14)
  - Diarrhoea [Recovered/Resolved]
  - Inability to afford medication [Unknown]
  - Drug ineffective [Unknown]
  - Asthma [Unknown]
  - Head injury [Unknown]
  - Panic disorder [Unknown]
  - Dizziness [Unknown]
  - Dyspnoea [Unknown]
  - Product substitution issue [Unknown]
  - Vocal cord dysfunction [Unknown]
  - Headache [Recovered/Resolved]
  - Incorrect dosage administered [Unknown]
  - Adverse drug reaction [Recovered/Resolved]
  - Nausea [Unknown]
